FAERS Safety Report 19058727 (Version 3)
Quarter: 2022Q1

REPORT INFORMATION
  Report Type: Spontaneous
  Country: US (occurrence: US)
  Receive Date: 20210325
  Receipt Date: 20220208
  Transmission Date: 20220423
  Serious: No
  Sender: FDA-Public Use
  Company Number: US-MYLANLABS-2021M1016148

PATIENT
  Sex: Female

DRUGS (4)
  1. ESTRADIOL TRANSDERMAL SYSTEM [Suspect]
     Active Substance: ESTRADIOL
     Indication: Hysterectomy
     Dosage: 0.05 MILLIGRAM, QD
     Route: 062
     Dates: start: 20210204
  2. PROGESTERONE [Concomitant]
     Active Substance: PROGESTERONE
     Dosage: 200 MILLIGRAM
     Route: 048
  3. ZYRTEC [Concomitant]
     Active Substance: CETIRIZINE HYDROCHLORIDE
     Dosage: UNK
  4. XANAX [Concomitant]
     Active Substance: ALPRAZOLAM
     Dosage: UNK

REACTIONS (11)
  - Impaired healing [Unknown]
  - Condition aggravated [Unknown]
  - Application site irritation [Unknown]
  - Application site swelling [Unknown]
  - Application site urticaria [Unknown]
  - Application site pruritus [Unknown]
  - Application site scar [Unknown]
  - Application site discolouration [Unknown]
  - Application site erythema [Unknown]
  - Product administered at inappropriate site [Unknown]
  - Product quality issue [Unknown]
